FAERS Safety Report 8372915-3 (Version None)
Quarter: 2012Q2

REPORT INFORMATION
  Report Type: 
  Country: None (occurrence: None)
  Receive Date: 20120521
  Receipt Date: 20120510
  Transmission Date: 20120825
  Serious: Yes (Hospitalization)
  Sender: FDA-Public Use
  Company Number: GB-ASTRAZENECA-2011SE68331

PATIENT
  Age: 26720 Day
  Sex: Male

DRUGS (14)
  1. PLAVIX FC [Concomitant]
     Indication: THROMBOSIS PROPHYLAXIS
     Route: 048
  2. VANDETANIB [Suspect]
     Route: 048
     Dates: start: 20111219
  3. DOTHIEPIN HYDROCHLORIDE [Concomitant]
     Indication: ANTIDEPRESSANT THERAPY
     Route: 048
  4. VANDETANIB [Suspect]
     Indication: THYROID CANCER
     Route: 048
     Dates: start: 20110722, end: 20110926
  5. VANDETANIB [Suspect]
     Route: 048
     Dates: start: 20111028, end: 20111107
  6. LEVOTHYROXINE SODIUM [Concomitant]
     Indication: THYROXINE THERAPY
     Route: 048
  7. SIMVASTATIN [Concomitant]
     Indication: BLOOD CHOLESTEROL INCREASED
     Route: 048
  8. DOTHIEPIN HYDROCHLORIDE [Concomitant]
     Indication: SLEEP DISORDER
     Route: 048
  9. DIAZEPAM [Concomitant]
     Indication: ANXIETY
     Route: 048
  10. VANDETANIB [Suspect]
     Route: 048
     Dates: start: 20111003, end: 20111010
  11. OMEPRAZOLE [Concomitant]
     Indication: GASTRITIS PROPHYLAXIS
     Route: 048
  12. LACTULOSE [Concomitant]
     Indication: CONSTIPATION
  13. MUCODYNE [Concomitant]
     Indication: PRODUCTIVE COUGH
     Route: 048
     Dates: start: 20110727
  14. BISOPRILOL [Concomitant]
     Indication: HYPERTENSION
     Route: 048

REACTIONS (1)
  - ABSCESS LIMB [None]
